FAERS Safety Report 7224318-2 (Version None)
Quarter: 2011Q1

REPORT INFORMATION
  Report Type: 
  Country: None (occurrence: None)
  Receive Date: 20110113
  Receipt Date: 20110105
  Transmission Date: 20110831
  Serious: Yes (Hospitalization)
  Sender: FDA-Public Use
  Company Number: US-BRISTOL-MYERS SQUIBB COMPANY-15248271

PATIENT
  Age: 61 Year
  Sex: Female
  Weight: 133 kg

DRUGS (25)
  1. CETUXIMAB [Suspect]
     Indication: NON-SMALL CELL LUNG CANCER
     Dosage: TAKEN TILL 29JUL10(44TH INF)(380D) RESUMED ON 12AUG2010
     Route: 042
     Dates: start: 20090714
  2. ATIVAN [Concomitant]
     Indication: DEPRESSION
     Dosage: AS NEEDED
     Route: 048
  3. POTASSIUM CHLORIDE [Concomitant]
     Indication: HYPOKALAEMIA
     Route: 048
     Dates: start: 20100807
  4. ATIVAN [Concomitant]
     Indication: ANXIETY
     Dosage: AS NEEDED
     Route: 048
  5. MECLIZINE [Concomitant]
     Indication: VERTIGO
     Dosage: AS NEEDED
     Route: 048
  6. PRAVACHOL [Concomitant]
     Route: 048
  7. LASIX [Concomitant]
     Route: 065
     Dates: end: 20100805
  8. METOLAZONE [Concomitant]
     Route: 048
     Dates: end: 20100805
  9. FRAGMIN [Concomitant]
     Indication: PROPHYLAXIS
     Route: 065
  10. LOPRESSOR [Concomitant]
     Indication: HYPERTENSION
     Route: 048
  11. LAMICTAL [Concomitant]
     Indication: CONVULSION
     Route: 048
  12. ENALAPRIL MALEATE AND HYDROCHLOROTHIAZIDE [Concomitant]
     Dosage: 1DF=10/25
     Route: 048
     Dates: end: 20100805
  13. NEXIUM [Concomitant]
     Indication: GASTROOESOPHAGEAL REFLUX DISEASE
     Route: 048
  14. MAGNESIUM SULFATE [Concomitant]
     Route: 065
     Dates: start: 20100807, end: 20100807
  15. LORTAB [Concomitant]
     Indication: PAIN
     Dosage: 1 DF = 7.5/500MG, 1 TAB EVERY 6 HRS
     Route: 048
  16. MAGNESIUM OXIDE [Concomitant]
     Route: 048
     Dates: start: 20100807
  17. NEUTRA-PHOS [Concomitant]
     Route: 065
  18. ZOMETA [Concomitant]
     Indication: NEOPLASM MALIGNANT
     Route: 065
  19. PEMETREXED DISODIUM [Suspect]
     Indication: NON-SMALL CELL LUNG CANCER
     Dosage: TAKEN TILL 27OCT09(6TH INF)
     Route: 042
     Dates: start: 20090714, end: 20091027
  20. PRILOSEC [Concomitant]
     Route: 065
  21. ZYRTEC [Concomitant]
     Indication: RHINITIS ALLERGIC
     Route: 048
  22. SINGULAIR [Concomitant]
     Indication: RHINITIS ALLERGIC
     Route: 048
  23. SARNA [Concomitant]
     Indication: PRURITUS
     Dosage: SARNA LOTION
     Route: 061
     Dates: start: 20100807
  24. LOVENOX [Concomitant]
     Route: 065
  25. MICRO-K [Concomitant]
     Route: 065

REACTIONS (4)
  - HYPOPHOSPHATAEMIA [None]
  - INFECTION [None]
  - ORTHOSTATIC HYPOTENSION [None]
  - HYPOKALAEMIA [None]
